FAERS Safety Report 13276941 (Version 1)
Quarter: 2017Q1

REPORT INFORMATION
  Report Type: Spontaneous
  Country: US (occurrence: US)
  Receive Date: 20170228
  Receipt Date: 20170228
  Transmission Date: 20170428
  Serious: Yes (Hospitalization)
  Sender: FDA-Public Use
  Company Number: None

PATIENT
  Age: 61 Year
  Sex: Male

DRUGS (2)
  1. OXYCODONE [Suspect]
     Active Substance: OXYCODONE
  2. FENTANYL. [Suspect]
     Active Substance: FENTANYL

REACTIONS (3)
  - Decreased appetite [None]
  - Pain [None]
  - Nausea [None]

NARRATIVE: CASE EVENT DATE: 20150818
